FAERS Safety Report 12982531 (Version 1)
Quarter: 2016Q4

REPORT INFORMATION
  Report Type: Spontaneous
  Country: GB (occurrence: GB)
  Receive Date: 20161129
  Receipt Date: 20161129
  Transmission Date: 20170207
  Serious: Yes (Life-Threatening)
  Sender: FDA-Public Use
  Company Number: GB-PFIZER INC-2016542535

PATIENT
  Age: 66 Year
  Sex: Male
  Weight: 58 kg

DRUGS (4)
  1. PROCARBAZINE [Suspect]
     Active Substance: PROCARBAZINE
     Indication: BRAIN NEOPLASM
     Dosage: CYCLIC, STOPPED AFTER 1 CYCLE
     Route: 042
     Dates: start: 20160915
  2. LOMUSTINE. [Suspect]
     Active Substance: LOMUSTINE
     Indication: BRAIN NEOPLASM
     Dosage: CYCLIC (STOPPED AFTER 1 CYCLE)
     Route: 042
     Dates: start: 20160913
  3. DEXAMETHASONE. [Concomitant]
     Active Substance: DEXAMETHASONE
     Indication: BRAIN OEDEMA
     Dosage: 6 MG, UNK
     Route: 048
     Dates: start: 201609
  4. VINCRISTINE SULFATE. [Suspect]
     Active Substance: VINCRISTINE SULFATE
     Indication: BRAIN NEOPLASM
     Dosage: CYCLIC (STOPPED AFTER 1 CYCLE)
     Dates: start: 20160913

REACTIONS (3)
  - Enzyme level increased [Recovering/Resolving]
  - Liver injury [Recovering/Resolving]
  - Blood bilirubin increased [Recovering/Resolving]

NARRATIVE: CASE EVENT DATE: 201610
